FAERS Safety Report 16566827 (Version 5)
Quarter: 2023Q1

REPORT INFORMATION
  Report Type: Spontaneous
  Country: CZ (occurrence: CZ)
  Receive Date: 20190712
  Receipt Date: 20230220
  Transmission Date: 20230418
  Serious: Yes (Life-Threatening, Hospitalization, Other)
  Sender: FDA-Public Use
  Company Number: CZ-ACCORD-104245

PATIENT
  Sex: Female

DRUGS (11)
  1. CAPECITABINE [Suspect]
     Active Substance: CAPECITABINE
     Indication: Cholangiocarcinoma
     Dosage: UNK
     Route: 065
     Dates: start: 201802
  2. OXALIPLATIN [Suspect]
     Active Substance: OXALIPLATIN
     Indication: Cholangiocarcinoma
     Dosage: UNK, CYCLE
     Route: 042
     Dates: start: 201708, end: 201801
  3. OXALIPLATIN [Suspect]
     Active Substance: OXALIPLATIN
     Indication: Hepatic cancer
     Dosage: UNK, 8 SERIES OF FOLFOX CHEMOTHERAPY
     Route: 042
  4. GEMCITABINE [Suspect]
     Active Substance: GEMCITABINE
     Indication: Cholangiocarcinoma
     Dosage: UNK, CYCLICAL 1 UNK, CYCLE
     Route: 042
     Dates: start: 201410, end: 201411
  5. GEMCITABINE [Suspect]
     Active Substance: GEMCITABINE
     Dosage: CYCLE,3 SERIES OF CHEMOTHERAPY CBDCA/GEMCITABINE
     Route: 042
     Dates: start: 201410, end: 201411
  6. CISPLATIN [Suspect]
     Active Substance: CISPLATIN
     Indication: Cholangiocarcinoma
     Dosage: UNK, CYCLICAL
     Route: 042
     Dates: start: 201411, end: 201411
  7. CISPLATIN [Suspect]
     Active Substance: CISPLATIN
     Dosage: CYCLIC(3 SERIES OF CHEMOTHERAPY DDP/GEMCITABINE)
     Route: 042
     Dates: start: 201410, end: 201411
  8. CARBOPLATIN [Suspect]
     Active Substance: CARBOPLATIN
     Indication: Cholangiocarcinoma
     Dosage: UNK UNK, CYCLE
     Route: 042
     Dates: start: 201611, end: 201703
  9. CARBOPLATIN [Suspect]
     Active Substance: CARBOPLATIN
     Dosage: UNK
     Route: 042
  10. LEUCOVORIN [Suspect]
     Active Substance: LEUCOVORIN
     Indication: Cholangiocarcinoma
     Dosage: CYCLE, 8 SERIES OF FOLFOX CHEMOTHERAPY
     Route: 042
     Dates: start: 201708
  11. FLUOROURACIL [Suspect]
     Active Substance: FLUOROURACIL
     Indication: Cholangiocarcinoma
     Dosage: UNK UNK, CYCLE
     Route: 065
     Dates: start: 201708, end: 201801

REACTIONS (11)
  - Neutropenia [Recovered/Resolved]
  - Neurotoxicity [Unknown]
  - Renal failure [Unknown]
  - Thrombocytopenia [Recovered/Resolved]
  - Anaemia [Unknown]
  - Oral candidiasis [Unknown]
  - Haematotoxicity [Recovered/Resolved]
  - Cholangiocarcinoma [Recovering/Resolving]
  - Malignant neoplasm progression [Recovering/Resolving]
  - Paraesthesia [Recovered/Resolved]
  - Product use in unapproved indication [Unknown]
